FAERS Safety Report 18417036 (Version 1)
Quarter: 2020Q4

REPORT INFORMATION
  Report Type: Spontaneous
  Country: DE (occurrence: DE)
  Receive Date: 20201022
  Receipt Date: 20201022
  Transmission Date: 20210114
  Serious: Yes (Other)
  Sender: FDA-Public Use
  Company Number: DE-VERITY PHARMACEUTICALS, INC.-2020VTY00478

PATIENT
  Age: 78 Year
  Sex: Male

DRUGS (3)
  1. TRIPTORELIN PAMOATE [Suspect]
     Active Substance: TRIPTORELIN PAMOATE
     Indication: PROSTATE CANCER METASTATIC
     Dosage: 1 DOSAGE UNITS, 4X/YEAR (1 IN 3M)
     Route: 065
     Dates: start: 2015
  2. TOP VITAL (VITAMIN D3) [Concomitant]
  3. TOP VITAL (VITAMIN C) [Concomitant]

REACTIONS (4)
  - Loss of consciousness [Unknown]
  - Dizziness [Unknown]
  - Anxiety [Unknown]
  - Tinnitus [Not Recovered/Not Resolved]

NARRATIVE: CASE EVENT DATE: 2020
